FAERS Safety Report 12947030 (Version 1)
Quarter: 2016Q4

REPORT INFORMATION
  Report Type: Spontaneous
  Country: US (occurrence: US)
  Receive Date: 20161116
  Receipt Date: 20161116
  Transmission Date: 20170207
  Serious: No
  Sender: FDA-Public Use
  Company Number: US-PFIZER INC-2016530717

PATIENT
  Age: 54 Year
  Sex: Female
  Weight: 108 kg

DRUGS (1)
  1. CHANTIX [Suspect]
     Active Substance: VARENICLINE TARTRATE
     Dosage: UNK UNK, 2X/DAY

REACTIONS (2)
  - Drug ineffective [Unknown]
  - Nausea [Unknown]
